FAERS Safety Report 4927269-9 (Version None)
Quarter: 2006Q1

REPORT INFORMATION
  Report Type: 
  Country: None (occurrence: None)
  Receive Date: 20060228
  Receipt Date: 20050413
  Transmission Date: 20060701
  Serious: No
  Sender: FDA-Public Use
  Company Number: US-GLAXOSMITHKLINE-A0554002A

PATIENT
  Age: 53 Year
  Sex: Female

DRUGS (2)
  1. IMITREX [Suspect]
     Indication: MIGRAINE
     Dosage: 1INJ AS REQUIRED
     Route: 058
     Dates: start: 19930101
  2. VYTORIN [Concomitant]

REACTIONS (3)
  - DRUG INEFFECTIVE [None]
  - INJECTION SITE IRRITATION [None]
  - PHARMACEUTICAL PRODUCT COMPLAINT [None]
